FAERS Safety Report 12705666 (Version 1)
Quarter: 2016Q3

REPORT INFORMATION
  Report Type: Spontaneous
  Country: US (occurrence: None)
  Receive Date: 20160831
  Receipt Date: 20160831
  Transmission Date: 20161109
  Serious: Yes (Other)
  Sender: FDA-Public Use
  Company Number: None

PATIENT
  Age: 19 Year
  Sex: Female
  Weight: 43.55 kg

DRUGS (3)
  1. DOCUSATE [Concomitant]
     Active Substance: DOCUSATE
  2. MIRALAX [Concomitant]
     Active Substance: POLYETHYLENE GLYCOL 3350
  3. BUPRENORPHINE NALOXONE, 8 MG [Suspect]
     Active Substance: BUPRENORPHINE\NALOXONE
     Indication: DRUG DEPENDENCE
     Route: 060
     Dates: start: 20160725, end: 20160829

REACTIONS (4)
  - Drug ineffective [None]
  - Drug withdrawal syndrome [None]
  - Malaise [None]
  - Product substitution issue [None]

NARRATIVE: CASE EVENT DATE: 20160824
